FAERS Safety Report 6019557-2 (Version None)
Quarter: 2008Q4

REPORT INFORMATION
  Report Type: 
  Country: None (occurrence: None)
  Receive Date: 20081224
  Receipt Date: 20081215
  Transmission Date: 20090506
  Serious: Yes (Other)
  Sender: FDA-Public Use
  Company Number: PHHY2008JP28534

PATIENT
  Age: 54 Year
  Sex: Female

DRUGS (2)
  1. LOCHOL [Suspect]
     Indication: HYPERCHOLESTEROLAEMIA
     Dosage: 20 MG ONCE A DAY
     Route: 048
  2. LOCHOL [Suspect]
     Dosage: 20MG/DAY
     Route: 048
     Dates: start: 20081201

REACTIONS (2)
  - DEAFNESS [None]
  - STRESS [None]
